FAERS Safety Report 5199801-4 (Version None)
Quarter: 2006Q4

REPORT INFORMATION
  Report Type: 
  Country: None (occurrence: None)
  Receive Date: 20061229
  Receipt Date: 20061214
  Transmission Date: 20070319
  Serious: Yes (Other)
  Sender: FDA-Public Use
  Company Number: 2006SP008438

PATIENT
  Age: 46 Year
  Sex: Female

DRUGS (2)
  1. PEG-INTRON [Suspect]
     Indication: HEPATITIS C
     Dosage: 80 MCG; QW; SC
     Route: 058
  2. REBETOL [Suspect]
     Indication: HEPATITIS C
     Dosage: 400 MG; BID; PO
     Route: 048
     Dates: start: 20050326

REACTIONS (7)
  - COGNITIVE DISORDER [None]
  - FATIGUE [None]
  - MYOSITIS [None]
  - NEUROPATHY [None]
  - OSTEOPENIA [None]
  - SARCOIDOSIS [None]
  - TENDONITIS [None]
